FAERS Safety Report 15860063 (Version 3)
Quarter: 2019Q1

REPORT INFORMATION
  Report Type: Spontaneous
  Country: NO (occurrence: NO)
  Receive Date: 20190123
  Receipt Date: 20190218
  Transmission Date: 20190417
  Serious: Yes (Other)
  Sender: FDA-Public Use
  Company Number: NO-009507513-1901NOR005716

PATIENT
  Sex: Female

DRUGS (1)
  1. NEXPLANON [Suspect]
     Active Substance: ETONOGESTREL
     Dosage: 1 IMPLANT
     Route: 059

REACTIONS (6)
  - Implant site pain [Recovering/Resolving]
  - Implant site inflammation [Recovering/Resolving]
  - Staphylococcal infection [Recovering/Resolving]
  - Implant site warmth [Recovering/Resolving]
  - Implant site erythema [Recovering/Resolving]
  - Product sterility lacking [Unknown]
